FAERS Safety Report 24551716 (Version 1)
Quarter: 2024Q4

REPORT INFORMATION
  Report Type: Spontaneous
  Country: FR (occurrence: FR)
  Receive Date: 20241026
  Receipt Date: 20241026
  Transmission Date: 20250114
  Serious: Yes (Death, Other)
  Sender: AUROBINDO
  Company Number: FR-AFSSAPS-PO2024001104

PATIENT
  Age: 73 Year
  Sex: Female

DRUGS (2)
  1. MIANSERIN [Suspect]
     Active Substance: MIANSERIN
     Indication: Major depression
     Dosage: 30 MILLIGRAM
     Route: 048
     Dates: start: 20240226, end: 20240324
  2. VENLAFAXINE [Suspect]
     Active Substance: VENLAFAXINE HYDROCHLORIDE
     Indication: Major depression
     Dosage: 75 MILLIGRAM (2 TABLETS IN THE MORNING)
     Route: 048
     Dates: start: 20240319, end: 20240324

REACTIONS (1)
  - Agranulocytosis [Fatal]

NARRATIVE: CASE EVENT DATE: 20240324
